FAERS Safety Report 8401306-1 (Version None)
Quarter: 2012Q2

REPORT INFORMATION
  Report Type: 
  Country: None (occurrence: None)
  Receive Date: 20120530
  Receipt Date: 20120530
  Transmission Date: 20120825
  Serious: Yes (Hospitalization, Disabling)
  Sender: FDA-Public Use
  Company Number: None

PATIENT
  Age: 60 Year
  Sex: Male
  Weight: 97.5234 kg

DRUGS (2)
  1. TEKTURNA [Suspect]
     Indication: BLOOD PRESSURE INCREASED
     Dosage: 150MG DAILY P.O.
     Route: 048
     Dates: start: 20100501, end: 20100901
  2. QUINAPRIL [Suspect]
     Dosage: 40MG DAILY P.O.
     Route: 048

REACTIONS (1)
  - RENAL FAILURE [None]
